FAERS Safety Report 4971619-4 (Version None)
Quarter: 2006Q2

REPORT INFORMATION
  Report Type: 
  Country: None (occurrence: None)
  Receive Date: 20060406
  Receipt Date: 20060324
  Transmission Date: 20061013
  Serious: Yes (Other)
  Sender: FDA-Public Use
  Company Number: 2006040354

PATIENT
  Age: 58 Year
  Sex: Male
  Weight: 82 kg

DRUGS (2)
  1. VIAGRA [Suspect]
     Indication: ERECTILE DYSFUNCTION
     Dosage: 50 MG , WEEKLY, ORAL
     Route: 048
     Dates: start: 20020201, end: 20060101
  2. ASTUDAL (AMLODIPINE BESILATE) [Concomitant]

REACTIONS (6)
  - ANOXIA [None]
  - EYE DISORDER [None]
  - MACULAR DEGENERATION [None]
  - PHOTOPSIA [None]
  - SKIN HYPERPIGMENTATION [None]
  - VITREOUS FLOATERS [None]
